FAERS Safety Report 7385276 (Version 5)
Quarter: 2013Q2

REPORT INFORMATION
  Report Type: Spontaneous
  Country: US (occurrence: None)
  Receive Date: 20100512
  Receipt Date: 20120709
  Transmission Date: 20140414
  Serious: Yes (Hospitalization)
  Sender: FDA-Public Use
  Company Number: PHHY2010US28592

PATIENT
  Age: 80 Year
  Sex: Female

DRUGS (2)
  1. GLEEVEC [Suspect]
     Indication: CHRONIC MYELOID LEUKAEMIA
     Dosage: 300 MG DAILY, ORAL
     Route: 048
     Dates: start: 200307
  2. CIPROFLOXACIN EXTENDED-RELEASE [Concomitant]

REACTIONS (4)
  - CARDIAC FAILURE CONGESTIVE [None]
  - RASH GENERALISED [None]
  - PALPITATIONS [None]
  - PRURITUS [None]
